FAERS Safety Report 5511161-5 (Version None)
Quarter: 2007Q4

REPORT INFORMATION
  Report Type: 
  Country: None (occurrence: None)
  Receive Date: 20071107
  Receipt Date: 20071030
  Transmission Date: 20080405
  Serious: Yes (Other)
  Sender: FDA-Public Use
  Company Number: 2007AL004603

PATIENT
  Age: 93 Year
  Sex: Female

DRUGS (6)
  1. TRAMADOL HCL [Suspect]
     Indication: SCIATICA
     Dosage: 100 MG; QID; PO
     Route: 048
     Dates: start: 20070822, end: 20070907
  2. ALENDRONIC ACID [Concomitant]
  3. ADCAL-D3 [Concomitant]
  4. PARACETAMOL [Concomitant]
  5. ZOPICLONE [Concomitant]
  6. METOCLOPRAMIDE [Concomitant]

REACTIONS (2)
  - BLOOD BILIRUBIN INCREASED [None]
  - JAUNDICE [None]
